FAERS Safety Report 8500825-7 (Version None)
Quarter: 2012Q3

REPORT INFORMATION
  Report Type: 
  Country: None (occurrence: None)
  Receive Date: 20120710
  Receipt Date: 20120706
  Transmission Date: 20120928
  Serious: Yes (Other)
  Sender: FDA-Public Use
  Company Number: GB-B.I. PHARMACEUTICALS,INC./RIDGEFIELD-2012-UK-00800UK

PATIENT
  Sex: Male
  Weight: 70 kg

DRUGS (8)
  1. BISOPROL [Concomitant]
     Dosage: 1.25 MG
  2. LATANOPROST [Concomitant]
  3. AMANTADINE HCL [Concomitant]
     Dosage: 300 MG
  4. MADOPAR [Concomitant]
     Dosage: 125 NR
  5. BRIMONIDINE EYE DROPS [Concomitant]
  6. PRAMIPEXOLE DIHYDROCHLORIDE [Suspect]
     Indication: PARKINSON'S DISEASE
     Dosage: 1000 MCG
     Route: 048
     Dates: start: 20111109
  7. SINEMET [Concomitant]
     Dosage: STRENGTH: 25/100, DOSE: 6X1 DAY
  8. ASPIRIN [Concomitant]
     Dosage: 75 MG

REACTIONS (2)
  - VISUAL FIELD DEFECT [None]
  - GLAUCOMA [None]
